FAERS Safety Report 6585544-9 (Version None)
Quarter: 2010Q1

REPORT INFORMATION
  Report Type: 
  Country: None (occurrence: None)
  Receive Date: 20100201
  Receipt Date: 20090409
  Transmission Date: 20100710
  Serious: Yes (Hospitalization)
  Sender: FDA-Public Use
  Company Number: 8044716

PATIENT
  Sex: Male
  Weight: 7.9 kg

DRUGS (5)
  1. KEPPRA [Suspect]
     Indication: CONVULSION
     Dosage: 350 MG BID INTRATHORACIC
     Route: 038
  2. ALBUTEROL [Concomitant]
  3. GLYCOPYRROLATE [Concomitant]
  4. BACTRAMIN [Concomitant]
  5. TOPAMAX [Concomitant]

REACTIONS (1)
  - VOMITING [None]
